FAERS Safety Report 13357034 (Version 4)
Quarter: 2019Q2

REPORT INFORMATION
  Report Type: Spontaneous
  Country: US (occurrence: US)
  Receive Date: 20170322
  Receipt Date: 20190521
  Transmission Date: 20190711
  Serious: No
  Sender: FDA-Public Use
  Company Number: US-ASTRAZENECA-2006BM18154

PATIENT
  Age: 3384 Week
  Sex: Female
  Weight: 88.5 kg

DRUGS (14)
  1. BYETTA [Suspect]
     Active Substance: EXENATIDE
     Indication: TYPE 2 DIABETES MELLITUS
     Route: 058
     Dates: start: 20061020
  2. ANGIOTENSIN II [Concomitant]
     Active Substance: ANGIOTENSIN II
     Dates: start: 2007
  3. BYDUREON [Suspect]
     Active Substance: EXENATIDE
     Indication: TYPE 2 DIABETES MELLITUS
     Route: 058
     Dates: start: 201510
  4. DURACEF [Concomitant]
     Dates: start: 2015
  5. BYDUREON BCISE [Suspect]
     Active Substance: EXENATIDE
     Indication: TYPE 2 DIABETES MELLITUS
     Route: 065
  6. FLONASE [Concomitant]
     Active Substance: FLUTICASONE PROPIONATE
     Dosage: UNK
     Dates: end: 200611
  7. EPIPEN [Concomitant]
     Active Substance: EPINEPHRINE
     Indication: MULTIPLE ALLERGIES
  8. HUMALOG [Concomitant]
     Active Substance: INSULIN LISPRO
     Dosage: UNK
  9. POTASSIUM CHLORIDE. [Concomitant]
     Active Substance: POTASSIUM CHLORIDE
     Indication: MUSCLE SPASMS
  10. NASOCORT [Concomitant]
     Active Substance: BUDESONIDE
     Dosage: UNK
     Dates: end: 200611
  11. METFORMIN [Concomitant]
     Active Substance: METFORMIN HYDROCHLORIDE
     Dosage: UNK
     Dates: end: 200611
  12. LANTUS [Concomitant]
     Active Substance: INSULIN GLARGINE
     Dosage: UNK
  13. INSULIN [Concomitant]
     Active Substance: INSULIN NOS
     Dosage: UNK
  14. BENADRYL [Concomitant]
     Active Substance: DIPHENHYDRAMINE HYDROCHLORIDE
     Indication: MULTIPLE ALLERGIES

REACTIONS (17)
  - Intentional product misuse [Unknown]
  - Dry eye [Not Recovered/Not Resolved]
  - Eye irritation [Not Recovered/Not Resolved]
  - Diabetes mellitus [Unknown]
  - Decreased appetite [Recovering/Resolving]
  - Injection site pruritus [Not Recovered/Not Resolved]
  - Eye disorder [Recovering/Resolving]
  - Product use issue [Unknown]
  - Intraocular pressure increased [Unknown]
  - Injury corneal [Not Recovered/Not Resolved]
  - Device leakage [Unknown]
  - Product dose omission [Unknown]
  - Nausea [Recovered/Resolved]
  - Wrong technique in product usage process [Unknown]
  - Injection site mass [Unknown]
  - Asthma [Recovered/Resolved]
  - Blood glucose decreased [Unknown]

NARRATIVE: CASE EVENT DATE: 2006
